FAERS Safety Report 8100101-0 (Version None)
Quarter: 2012Q1

REPORT INFORMATION
  Report Type: 
  Country: None (occurrence: None)
  Receive Date: 20120129
  Receipt Date: 20111128
  Transmission Date: 20120608
  Serious: No
  Sender: FDA-Public Use
  Company Number: US-ABBOTT-11P-163-0878928-00

PATIENT
  Sex: Male
  Weight: 112.59 kg

DRUGS (2)
  1. HUMIRA [Suspect]
     Indication: PSORIATIC ARTHROPATHY
     Dates: start: 20100701
  2. LANTUS [Concomitant]
     Indication: DIABETES MELLITUS

REACTIONS (6)
  - PSORIASIS [None]
  - SKIN DISORDER [None]
  - ARTHRALGIA [None]
  - FATIGUE [None]
  - PRURITUS [None]
  - DRUG EFFECT DECREASED [None]
